FAERS Safety Report 8282289-4 (Version None)
Quarter: 2012Q2

REPORT INFORMATION
  Report Type: 
  Country: None (occurrence: None)
  Receive Date: 20120413
  Receipt Date: 20120402
  Transmission Date: 20120825
  Serious: No
  Sender: FDA-Public Use
  Company Number: CA-JNJFOC-20120401955

PATIENT
  Sex: Female
  Weight: 80 kg

DRUGS (25)
  1. ALTACE [Concomitant]
     Route: 065
  2. SINGULAIR [Concomitant]
     Route: 065
  3. VITAMIN D [Concomitant]
     Route: 065
  4. CELEXA [Concomitant]
     Route: 065
  5. FOLIC ACID [Concomitant]
     Route: 065
  6. ALBUTEROL [Concomitant]
     Route: 065
  7. CALCIUM AND MAGNESIUM [Concomitant]
     Route: 065
  8. TYLENOL ES [Concomitant]
     Route: 065
  9. METHOTREXATE [Concomitant]
     Route: 058
  10. FOSAMAX [Concomitant]
     Route: 065
  11. REMICADE [Suspect]
     Indication: PSORIATIC ARTHROPATHY
     Route: 042
     Dates: start: 20080612
  12. HUMALOG [Concomitant]
     Route: 065
  13. ESTROGEL [Concomitant]
     Route: 065
  14. MELOXICAM [Concomitant]
     Route: 065
  15. CETIRIZINE HCL [Concomitant]
     Route: 065
  16. BENADRYL [Concomitant]
     Route: 065
  17. HUMULIN N [Concomitant]
     Route: 065
  18. FLONASE [Concomitant]
     Route: 045
  19. NEXIUM [Concomitant]
     Route: 065
  20. SYNTHROID [Concomitant]
     Route: 065
  21. ASPIRIN [Concomitant]
     Route: 065
  22. METFORMIN HCL [Concomitant]
     Route: 065
  23. CITALOPRAM HYDROBROMIDE [Concomitant]
     Route: 065
  24. CRESTOR [Concomitant]
     Route: 065
  25. ELAVIL [Concomitant]
     Route: 065

REACTIONS (2)
  - HERPES ZOSTER [None]
  - CYSTITIS [None]
